FAERS Safety Report 13854014 (Version 1)
Quarter: 2017Q3

REPORT INFORMATION
  Report Type: Spontaneous
  Country: SE (occurrence: SE)
  Receive Date: 20170810
  Receipt Date: 20170810
  Transmission Date: 20171127
  Serious: Yes (Other)
  Sender: FDA-Public Use
  Company Number: SE-ALKEM LABORATORIES LIMITED-SE-ALKEM-2017-00206

PATIENT
  Age: 49 Year
  Sex: Female

DRUGS (3)
  1. MYCOPHENOLATE MOFETIL. [Suspect]
     Active Substance: MYCOPHENOLATE MOFETIL
     Indication: NEPHRITIC SYNDROME
     Dosage: 1 G, QD
     Dates: start: 2014
  2. METHOTREXATE. [Concomitant]
     Active Substance: METHOTREXATE
     Indication: SKIN INFECTION
     Dosage: UNKNOWN
     Dates: start: 2014
  3. RITUXIMAB. [Concomitant]
     Active Substance: RITUXIMAB
     Indication: NEPHRITIC SYNDROME
     Dosage: 600 MG, QID (326 MG/M2)
     Dates: start: 201401

REACTIONS (1)
  - Blood creatinine increased [Recovering/Resolving]
